FAERS Safety Report 6592976-1 (Version None)
Quarter: 2010Q1

REPORT INFORMATION
  Report Type: 
  Country: None (occurrence: None)
  Receive Date: 20100222
  Receipt Date: 20100212
  Transmission Date: 20100710
  Serious: Yes (Other)
  Sender: FDA-Public Use
  Company Number: GB-BRISTOL-MYERS SQUIBB COMPANY-14976120

PATIENT
  Sex: Male

DRUGS (1)
  1. SUSTIVA [Suspect]

REACTIONS (1)
  - ENDOSCOPY [None]
